FAERS Safety Report 5001660-7 (Version None)
Quarter: 2006Q2

REPORT INFORMATION
  Report Type: 
  Country: None (occurrence: None)
  Receive Date: 20060515
  Receipt Date: 20060504
  Transmission Date: 20061013
  Serious: Yes (Hospitalization)
  Sender: FDA-Public Use
  Company Number: PHBS2006IL06715

PATIENT
  Age: 32 Year
  Sex: Female

DRUGS (1)
  1. CLOZAPINE [Suspect]
     Indication: SCHIZOPHRENIA
     Route: 065

REACTIONS (17)
  - ARTHRALGIA [None]
  - ASPARTATE AMINOTRANSFERASE INCREASED [None]
  - BLOOD LACTATE DEHYDROGENASE INCREASED [None]
  - BLOOD PRESSURE INCREASED [None]
  - CHEST PAIN [None]
  - COOMBS DIRECT TEST NEGATIVE [None]
  - FATIGUE [None]
  - HAEMOGLOBIN DECREASED [None]
  - HAPTOGLOBIN INCREASED [None]
  - HEART RATE INCREASED [None]
  - MYALGIA [None]
  - OEDEMA [None]
  - PYREXIA [None]
  - SERUM FERRITIN INCREASED [None]
  - SYSTEMIC LUPUS ERYTHEMATOSUS [None]
  - URINE ANALYSIS ABNORMAL [None]
  - WEIGHT DECREASED [None]
